FAERS Safety Report 13671050 (Version 1)
Quarter: 2017Q2

REPORT INFORMATION
  Report Type: Spontaneous
  Country: US (occurrence: US)
  Receive Date: 20170620
  Receipt Date: 20170620
  Transmission Date: 20170830
  Serious: No
  Sender: FDA-Public Use
  Company Number: US-ROCHE-1305956

PATIENT
  Sex: Female

DRUGS (5)
  1. XELODA [Suspect]
     Active Substance: CAPECITABINE
     Indication: OESOPHAGEAL CARCINOMA
     Dosage: 2 TABLETS BY MOUTH IN THE MORNING AND 1 TAB IN THE EVENING FOR 14 DAYS FOLLOWED BY 7 DAYS OFF
     Route: 048
     Dates: start: 20130522
  2. PROBENECID. [Concomitant]
     Active Substance: PROBENECID
  3. DOXAZOSIN [Concomitant]
     Active Substance: DOXAZOSIN\DOXAZOSIN MESYLATE
  4. CARVEDILOL. [Concomitant]
     Active Substance: CARVEDILOL
     Route: 065
  5. LODIPINE [Concomitant]

REACTIONS (1)
  - Diarrhoea [Unknown]
